FAERS Safety Report 9367444 (Version 1)
Quarter: 2013Q2

REPORT INFORMATION
  Report Type: Spontaneous
  Country: US (occurrence: US)
  Receive Date: 20130625
  Receipt Date: 20130625
  Transmission Date: 20140414
  Serious: No
  Sender: FDA-Public Use
  Company Number: US-ASTELLAS-2012US006978

PATIENT
  Age: 90 Year
  Sex: Male

DRUGS (1)
  1. VESICARE [Suspect]
     Indication: NOCTURIA
     Dosage: 5 MG, UNKNOWN/D FOR 3 DAYS
     Route: 048
     Dates: start: 20120810

REACTIONS (5)
  - Off label use [Unknown]
  - Muscle spasms [Recovered/Resolved]
  - Dizziness [Recovered/Resolved]
  - Fatigue [Not Recovered/Not Resolved]
  - Somnolence [Not Recovered/Not Resolved]
